FAERS Safety Report 8564672-2 (Version None)
Quarter: 2012Q3

REPORT INFORMATION
  Report Type: 
  Country: None (occurrence: None)
  Receive Date: 20120803
  Receipt Date: 20120725
  Transmission Date: 20120928
  Serious: Yes (Other)
  Sender: FDA-Public Use
  Company Number: CA-JNJFOC-20120715098

PATIENT
  Sex: Male
  Weight: 61.24 kg

DRUGS (2)
  1. REMICADE [Suspect]
     Indication: CROHN'S DISEASE
     Route: 042
     Dates: start: 20110208
  2. HYDROCORTISONE [Concomitant]
     Indication: PREMEDICATION
     Route: 065

REACTIONS (2)
  - CARDIAC DISORDER [None]
  - HERNIA [None]
